FAERS Safety Report 8213058-9 (Version None)
Quarter: 2012Q1

REPORT INFORMATION
  Report Type: 
  Country: None (occurrence: None)
  Receive Date: 20120315
  Receipt Date: 20120302
  Transmission Date: 20120608
  Serious: Yes (Hospitalization, Other)
  Sender: FDA-Public Use
  Company Number: JP-AMGEN-JPNSP2011055006

PATIENT
  Age: 61 Year
  Sex: Female

DRUGS (46)
  1. ROMIPLATE [Suspect]
     Route: 058
  2. ROMIPLATE [Suspect]
     Route: 058
     Dates: start: 20110907, end: 20110907
  3. ROMIPLATE [Suspect]
     Route: 058
     Dates: start: 20111215, end: 20111215
  4. PREDNISOLONE [Concomitant]
     Route: 048
     Dates: start: 20110821, end: 20110823
  5. ROMIPLATE [Suspect]
     Indication: IDIOPATHIC THROMBOCYTOPENIC PURPURA
     Dosage: 3 MUG/KG, UNK
     Route: 058
     Dates: start: 20110815, end: 20111019
  6. ROMIPLATE [Suspect]
     Route: 058
     Dates: start: 20111220
  7. ROMIPLATE [Suspect]
     Route: 058
     Dates: start: 20111229, end: 20120105
  8. PROMACTA [Concomitant]
     Route: 048
     Dates: start: 20111128, end: 20111205
  9. FAMOTIDINE [Concomitant]
     Indication: GASTRITIS
     Dosage: UNCERTAINTY
     Route: 065
  10. ROMIPLATE [Suspect]
     Route: 058
     Dates: start: 20110815
  11. ROMIPLATE [Suspect]
     Route: 058
     Dates: start: 20111208, end: 20111208
  12. ROMIPLATE [Suspect]
     Route: 058
     Dates: start: 20120112, end: 20120119
  13. ROMIPLATE [Suspect]
     Route: 058
     Dates: start: 20120126, end: 20120209
  14. PROMACTA [Concomitant]
     Indication: IDIOPATHIC THROMBOCYTOPENIC PURPURA
     Dosage: 12.5 MG, UNK
     Route: 048
     Dates: start: 20111103
  15. PROMACTA [Concomitant]
     Route: 048
     Dates: start: 20111107, end: 20111115
  16. PREDNISOLONE [Concomitant]
     Route: 048
     Dates: start: 20111120, end: 20111123
  17. PHENYTOIN SODIUM CAP [Concomitant]
     Indication: EPILEPSY
     Dosage: UNCERTAINTY
     Route: 065
  18. ROMIPLATE [Suspect]
     Route: 058
     Dates: start: 20111012, end: 20111019
  19. ROMIPLATE [Suspect]
     Route: 058
     Dates: start: 20111206
  20. ROMIPLATE [Suspect]
     Route: 058
     Dates: start: 20110914, end: 20110914
  21. PROMACTA [Concomitant]
     Route: 048
     Dates: start: 20111124, end: 20111127
  22. PREDNISOLONE [Concomitant]
     Route: 048
     Dates: start: 20111108, end: 20111119
  23. PREDNISOLONE [Concomitant]
     Route: 048
     Dates: start: 20111124, end: 20111220
  24. ROMIPLATE [Suspect]
     Route: 058
     Dates: start: 20110816, end: 20110823
  25. ROMIPLATE [Suspect]
     Route: 058
     Dates: start: 20110921, end: 20111005
  26. ROMIPLATE [Suspect]
     Route: 058
     Dates: start: 20111012, end: 20111012
  27. ROMIPLATE [Suspect]
     Route: 058
     Dates: start: 20111203, end: 20111203
  28. PROMACTA [Concomitant]
     Route: 048
     Dates: start: 20111101, end: 20111106
  29. ANABOLIC STEROIDS [Concomitant]
     Route: 065
  30. PREDNISOLONE [Concomitant]
     Indication: IDIOPATHIC THROMBOCYTOPENIC PURPURA
     Route: 048
     Dates: start: 20110815, end: 20110818
  31. PREDNISOLONE [Concomitant]
     Route: 048
     Dates: start: 20110819, end: 20110820
  32. PREDNISOLONE [Concomitant]
     Route: 048
     Dates: start: 20110824, end: 20111030
  33. BONALON 5MG [Concomitant]
     Indication: OSTEOPOROSIS
     Dosage: UNCERTAINTY
     Route: 065
  34. ROMIPLATE [Suspect]
     Route: 058
     Dates: start: 20110831, end: 20110831
  35. ANABOLIC STEROIDS AND PREPARATIONS [Concomitant]
     Route: 065
  36. ROMIPLATE [Suspect]
     Route: 058
     Dates: start: 20111213
  37. ROMIPLATE [Suspect]
     Route: 058
     Dates: start: 20111222, end: 20111222
  38. PROMACTA [Concomitant]
     Route: 048
     Dates: start: 20111108
  39. PROMACTA [Concomitant]
     Route: 048
     Dates: start: 20111119, end: 20111123
  40. ANABOLIC STEROIDS AND PREPARATIONS [Concomitant]
     Route: 065
  41. PREDNISOLONE [Concomitant]
     Route: 048
     Dates: start: 20111221
  42. ROMIPLATE [Suspect]
     Route: 058
     Dates: start: 20120216, end: 20120223
  43. ANABOLIC STEROIDS [Concomitant]
     Route: 065
  44. PROMACTA [Concomitant]
     Route: 048
     Dates: start: 20111116, end: 20111118
  45. ANABOLIC STEROIDS [Concomitant]
     Dosage: 25 MG, UNK
     Route: 065
  46. PREDNISOLONE [Concomitant]
     Route: 048
     Dates: start: 20111031, end: 20111107

REACTIONS (4)
  - RENAL IMPAIRMENT [None]
  - THROMBOCYTOPENIA [None]
  - RENAL DISORDER [None]
  - LIVER DISORDER [None]
